FAERS Safety Report 6595471-9 (Version None)
Quarter: 2010Q1

REPORT INFORMATION
  Report Type: 
  Country: None (occurrence: None)
  Receive Date: 20100216
  Receipt Date: 20100201
  Transmission Date: 20100710
  Serious: Yes (Other)
  Sender: FDA-Public Use
  Company Number: TRP_06253_2009

PATIENT
  Sex: Female
  Weight: 139 kg

DRUGS (8)
  1. RIBAVIRIN [Suspect]
     Indication: HEPATITIS C
     Dosage: SEE IMAGE, ORAL
     Route: 048
     Dates: start: 20090201, end: 20090501
  2. RIBAVIRIN [Suspect]
     Indication: HEPATITIS C
     Dosage: SEE IMAGE, ORAL
     Route: 048
     Dates: start: 20090523, end: 20090527
  3. INFERGEN [Suspect]
     Indication: HEPATITIS C
     Dosage: 15 UG QD, SUBCUTANEOUS
     Route: 058
     Dates: start: 20090523, end: 20090527
  4. PEGASYS [Suspect]
     Dosage: 180 UG 1X/WEEK
     Dates: start: 20090201, end: 20090501
  5. EFFEXOR [Concomitant]
  6. CITRACAL [Concomitant]
  7. DAILY MULTIVITAMIN [Concomitant]
  8. FISH OIL [Concomitant]

REACTIONS (29)
  - ALOPECIA [None]
  - ANAEMIA [None]
  - ARTHRALGIA [None]
  - ASPARTATE AMINOTRANSFERASE INCREASED [None]
  - BURNING SENSATION [None]
  - CHEST PAIN [None]
  - CHILLS [None]
  - COUGH [None]
  - DECREASED APPETITE [None]
  - DEHYDRATION [None]
  - DEPRESSION [None]
  - DRY EYE [None]
  - DRY MOUTH [None]
  - DRY SKIN [None]
  - GASTROOESOPHAGEAL REFLUX DISEASE [None]
  - HEADACHE [None]
  - HYPERHIDROSIS [None]
  - INSOMNIA [None]
  - MYALGIA [None]
  - NAUSEA [None]
  - NEUTROPENIA [None]
  - NO THERAPEUTIC RESPONSE [None]
  - PARAESTHESIA [None]
  - PSYCHOMOTOR HYPERACTIVITY [None]
  - PYREXIA [None]
  - SENSATION OF PRESSURE [None]
  - THYROXINE FREE INCREASED [None]
  - TREATMENT NONCOMPLIANCE [None]
  - WHITE BLOOD CELL COUNT DECREASED [None]
